FAERS Safety Report 9687599 (Version 1)
Quarter: 2013Q4

REPORT INFORMATION
  Report Type: Spontaneous
  Country: US (occurrence: None)
  Receive Date: 20131113
  Receipt Date: 20131113
  Transmission Date: 20140711
  Serious: Yes (Other)
  Sender: FDA-Public Use
  Company Number: None

PATIENT
  Age: 61 Year
  Sex: Female

DRUGS (4)
  1. FORTEO PEN [Suspect]
     Indication: OSTEOPOROSIS
     Route: 058
     Dates: start: 20131013
  2. RESTASIS [Concomitant]
  3. VITAMIN D [Concomitant]
  4. VITAMIN K [Concomitant]

REACTIONS (7)
  - Feeling abnormal [None]
  - Dysphagia [None]
  - Oropharyngeal pain [None]
  - Dysarthria [None]
  - Rash [None]
  - Fatigue [None]
  - Migraine [None]
